FAERS Safety Report 16990989 (Version 2)
Quarter: 2019Q4

REPORT INFORMATION
  Report Type: Spontaneous
  Country: US (occurrence: US)
  Receive Date: 20191104
  Receipt Date: 20191120
  Transmission Date: 20200122
  Serious: No
  Sender: FDA-Public Use
  Company Number: US-SA-2019SA303257

PATIENT
  Age: 13 Year
  Sex: Female

DRUGS (1)
  1. DUPIXENT [Suspect]
     Active Substance: DUPILUMAB
     Indication: DERMATITIS ATOPIC
     Dosage: 200 MG, QOW
     Dates: start: 201904

REACTIONS (5)
  - Eye pruritus [Unknown]
  - Urticaria [Unknown]
  - Eye swelling [Unknown]
  - Pruritus [Unknown]
  - Product use issue [Unknown]

NARRATIVE: CASE EVENT DATE: 201904
